FAERS Safety Report 4925999-6 (Version None)
Quarter: 2006Q1

REPORT INFORMATION
  Report Type: 
  Country: None (occurrence: None)
  Receive Date: 20060228
  Receipt Date: 20050721
  Transmission Date: 20060701
  Serious: No
  Sender: FDA-Public Use
  Company Number: US-GLAXOSMITHKLINE-A0567194A

PATIENT
  Age: 57 Year
  Sex: Female

DRUGS (3)
  1. LAMICTAL [Suspect]
     Indication: BIPOLAR DISORDER
     Dosage: 300MG PER DAY
     Route: 048
     Dates: start: 20041101
  2. VERSED [Concomitant]
  3. MORPHINE [Concomitant]

REACTIONS (7)
  - ANXIETY [None]
  - BURNING SENSATION [None]
  - MIGRAINE [None]
  - PRURITUS [None]
  - RASH [None]
  - RETCHING [None]
  - URTICARIA [None]
